FAERS Safety Report 6490596-0 (Version None)
Quarter: 2009Q4

REPORT INFORMATION
  Report Type: 
  Country: None (occurrence: None)
  Receive Date: 20091124
  Receipt Date: 20090608
  Transmission Date: 20100525
  Serious: Yes (Other)
  Sender: FDA-Public Use
  Company Number: 284448

PATIENT
  Age: 49 Year
  Sex: Female

DRUGS (4)
  1. HERCEPTIN [Suspect]
     Indication: ADJUVANT THERAPY
     Dosage: 4 MG/KG, SINGLE, INTRAVENOUS, 2MG/KG, 1/WEEK
     Route: 042
     Dates: start: 20090406
  2. HERCEPTIN [Suspect]
     Indication: ADJUVANT THERAPY
     Dosage: 4 MG/KG, SINGLE, INTRAVENOUS, 2MG/KG, 1/WEEK
     Route: 042
     Dates: start: 20090413
  3. TAXOTERE [Concomitant]
  4. CARBOPLATIN [Concomitant]

REACTIONS (2)
  - ANGIOEDEMA [None]
  - URTICARIA [None]
